FAERS Safety Report 9181926 (Version 1)
Quarter: 2013Q1

REPORT INFORMATION
  Report Type: Spontaneous
  Country: PL (occurrence: PL)
  Receive Date: 20130322
  Receipt Date: 20130322
  Transmission Date: 20140127
  Serious: Yes (Hospitalization)
  Sender: FDA-Public Use
  Company Number: PL-PFIZER INC-2013090161

PATIENT
  Age: 39 Year
  Sex: Male
  Weight: 75 kg

DRUGS (3)
  1. AMLODIPINE BESILATE [Suspect]
  2. PROPRANOLOL [Suspect]
  3. DIAZEPAM [Suspect]

REACTIONS (2)
  - Heart rate abnormal [Recovered/Resolved]
  - Blood pressure decreased [Recovered/Resolved]
